FAERS Safety Report 6449855-X (Version None)
Quarter: 2009Q4

REPORT INFORMATION
  Report Type: 
  Country: None (occurrence: None)
  Receive Date: 20091121
  Receipt Date: 20091109
  Transmission Date: 20100525
  Serious: Yes (Death)
  Sender: FDA-Public Use
  Company Number: AU-TYCO HEALTHCARE/MALLINCKRODT-T200902083

PATIENT
  Sex: Female

DRUGS (7)
  1. OCTREOSCAN [Suspect]
     Indication: GLUCAGONOMA
     Dosage: 5.3 - 7.8 GBQ VIA INFUSION PUMP OVER 20 MINUTES
     Route: 042
  2. OCTREOSCAN [Suspect]
     Dosage: 5.3 - 7.8 GBQ VIA INFUSION PUMP OVER 20 MINUTES
     Route: 042
  3. OCTREOSCAN [Suspect]
     Dosage: 5.3 - 7.8 GBQ VIA INFUSION PUMP OVER 20 MINUTES
     Route: 042
  4. 5-FLUOROURACIL                     /00098801/ [Suspect]
     Indication: GLUCAGONOMA
     Dosage: 200 MG/M2, QD VIA CONTINUOUS AMBULATORY IV PUMP
     Route: 042
  5. 5-FLUOROURACIL                     /00098801/ [Suspect]
     Dosage: 200 MG/M2, QD VIA CONTINUOUS AMBULATORY IV PUMP
     Route: 042
  6. 5-FLUOROURACIL                     /00098801/ [Suspect]
     Dosage: 200 MG/M2, QD VIA CONTINUOUS AMBULATORY IV PUMP
     Route: 042
  7. NORMAL SALINE [Concomitant]
     Indication: GLUCAGONOMA
     Route: 042

REACTIONS (4)
  - DISEASE PROGRESSION [None]
  - INTENTIONAL DRUG MISUSE [None]
  - LYMPHOPENIA [None]
  - METASTATIC PAIN [None]
